FAERS Safety Report 12813066 (Version 1)
Quarter: 2016Q4

REPORT INFORMATION
  Report Type: Spontaneous
  Country: US (occurrence: US)
  Receive Date: 20161005
  Receipt Date: 20161005
  Transmission Date: 20170207
  Serious: No
  Sender: FDA-Public Use
  Company Number: US-AMGEN-USASP2016013111

PATIENT

DRUGS (1)
  1. PROLIA [Suspect]
     Active Substance: DENOSUMAB
     Indication: PRODUCT USED FOR UNKNOWN INDICATION
     Dosage: UNK
     Route: 065

REACTIONS (11)
  - Heart rate increased [Unknown]
  - Pruritus [Unknown]
  - Constipation [Unknown]
  - Blister [Unknown]
  - Nausea [Unknown]
  - Secretion discharge [Unknown]
  - Rash [Unknown]
  - Skin fissures [Unknown]
  - Insomnia [Unknown]
  - Dizziness [Unknown]
  - Balance disorder [Unknown]
